FAERS Safety Report 5122117-9 (Version None)
Quarter: 2006Q4

REPORT INFORMATION
  Report Type: 
  Country: None (occurrence: None)
  Receive Date: 20061004
  Receipt Date: 20061004
  Transmission Date: 20070319
  Serious: Yes (Hospitalization)
  Sender: FDA-Public Use
  Company Number: None

PATIENT
  Age: 57 Year
  Sex: Female
  Weight: 70 kg

DRUGS (1)
  1. COUMADIN [Suspect]
     Indication: PULMONARY EMBOLISM

REACTIONS (1)
  - INTERNATIONAL NORMALISED RATIO INCREASED [None]
